FAERS Safety Report 6902651-9 (Version None)
Quarter: 2010Q3

REPORT INFORMATION
  Report Type: 
  Country: None (occurrence: None)
  Receive Date: 20100803
  Receipt Date: 20080819
  Transmission Date: 20110219
  Serious: No
  Sender: FDA-Public Use
  Company Number: US-PFIZER INC-2008069988

PATIENT
  Sex: Female
  Weight: 62.3 kg

DRUGS (8)
  1. LYRICA [Suspect]
     Dates: start: 20070101
  2. CORTICOSTEROIDS [Suspect]
     Indication: JOINT INJURY
  3. VYTORIN [Suspect]
  4. BENADRYL [Suspect]
     Indication: BURNING SENSATION
  5. BENADRYL [Suspect]
     Indication: PRURITUS
  6. CELEBREX [Concomitant]
  7. KLONOPIN [Concomitant]
  8. DRUG, UNSPECIFIED [Concomitant]

REACTIONS (8)
  - BURNING SENSATION [None]
  - EYE PAIN [None]
  - FEELING ABNORMAL [None]
  - INSOMNIA [None]
  - MYALGIA [None]
  - PARAESTHESIA [None]
  - PRURITUS [None]
  - SOMNOLENCE [None]
